FAERS Safety Report 4620367-9 (Version None)
Quarter: 2005Q1

REPORT INFORMATION
  Report Type: 
  Country: None (occurrence: None)
  Receive Date: 20050324
  Receipt Date: 20050315
  Transmission Date: 20050727
  Serious: Yes (Hospitalization)
  Sender: FDA-Public Use
  Company Number: 2005045272

PATIENT
  Age: 80 Year
  Sex: Male
  Weight: 93.441 kg

DRUGS (8)
  1. BEXTRA [Suspect]
     Indication: RHEUMATOID ARTHRITIS
     Dosage: 20 MG (20 MG, 1 IN 1 D), ORAL
     Route: 048
     Dates: start: 20020101
  2. XALATAN [Suspect]
     Indication: GLAUCOMA
     Dosage: 1 DROP, 1 IN 1 D, OPHTHALMIC
     Route: 047
  3. TIMOLOL MALEATE [Suspect]
     Indication: GLAUCOMA
     Dosage: 1 DROP, 2 IN 1 D, OPHTHALMIC
     Route: 047
     Dates: end: 20050101
  4. ICAPS (MINERALS NOS, VITAMINS NOS) [Concomitant]
  5. MULTIVITAMINS (ASCORBIC ACID, ERGOCALCIFEROL, FOLIC ACID, NICOTINAMIDE [Concomitant]
  6. ASPIRIN [Concomitant]
  7. ESOMEPRAZOLE (ESOMEPRAZOLE) [Concomitant]
  8. FEXOFENADINE HYDROCHLORIDE [Concomitant]

REACTIONS (5)
  - DRUG TOXICITY [None]
  - EYE DISORDER [None]
  - EYE INFLAMMATION [None]
  - INTRAOCULAR PRESSURE INCREASED [None]
  - PHOTOPHOBIA [None]
